FAERS Safety Report 16932216 (Version 1)
Quarter: 2019Q4

REPORT INFORMATION
  Report Type: Report from Study
  Country: DE (occurrence: DE)
  Receive Date: 20191017
  Receipt Date: 20191017
  Transmission Date: 20200122
  Serious: Yes (Hospitalization)
  Sender: FDA-Public Use
  Company Number: DE-JNJFOC-20191019858

PATIENT
  Age: 85 Year
  Sex: Male
  Weight: 90 kg

DRUGS (1)
  1. RIVAROXABAN [Suspect]
     Active Substance: RIVAROXABAN
     Indication: ATRIAL FIBRILLATION
     Route: 048
     Dates: end: 20190928

REACTIONS (2)
  - Cerebral ventricle collapse [Unknown]
  - Thalamus haemorrhage [Unknown]

NARRATIVE: CASE EVENT DATE: 20190928
